FAERS Safety Report 9292475 (Version 1)
Quarter: 2013Q2

REPORT INFORMATION
  Report Type: Spontaneous
  Country: JP (occurrence: None)
  Receive Date: 20130513
  Receipt Date: 20130513
  Transmission Date: 20140414
  Serious: Yes (Other)
  Sender: FDA-Public Use
  Company Number: CIP-2013-00123

PATIENT
  Age: 72 Year
  Sex: Male

DRUGS (4)
  1. CARBOPLATIN [Suspect]
     Indication: SQUAMOUS CELL CARCINOMA
     Dosage: AUC 2 (WEEKLY), UNKNOWN
  2. RADIOTHERAPY [Suspect]
     Indication: SQUAMOUS CELL CARCINOMA
     Dosage: 68 GY (UNKNOWN), UNKNOWN
  3. PACLITAXEL (PACLITAXEL) [Suspect]
     Indication: SQUAMOUS CELL CARCINOMA
  4. FLUOROURACIL [Suspect]
     Indication: SQUAMOUS CELL CARCINOMA
     Dosage: DAY 1-4 (1000 MG/M2),
     Route: 042

REACTIONS (2)
  - Cellulitis [None]
  - Sepsis [None]
